FAERS Safety Report 9020837 (Version 1)
Quarter: 2013Q1

REPORT INFORMATION
  Report Type: Spontaneous
  Country: US (occurrence: US)
  Receive Date: 20130119
  Receipt Date: 20130119
  Transmission Date: 20140127
  Serious: No
  Sender: FDA-Public Use
  Company Number: US-ALLERGAN-1205777US

PATIENT
  Sex: Female

DRUGS (2)
  1. BOTOX COSMETIC [Suspect]
     Indication: SKIN WRINKLING
     Dosage: UNK
     Route: 030
     Dates: start: 20120412, end: 20120412
  2. JUVEDERM [Concomitant]
     Indication: SKIN WRINKLING
     Dosage: UNK
     Dates: start: 20120412, end: 20120412

REACTIONS (2)
  - Drug administered at inappropriate site [Unknown]
  - Eyelid ptosis [Recovering/Resolving]
